FAERS Safety Report 16395073 (Version 1)
Quarter: 2019Q2

REPORT INFORMATION
  Report Type: Spontaneous
  Country: US (occurrence: US)
  Receive Date: 20190604
  Receipt Date: 20190604
  Transmission Date: 20190711
  Serious: Yes (Death)
  Sender: FDA-Public Use
  Company Number: None

PATIENT
  Age: 71 Year
  Sex: Male

DRUGS (18)
  1. XIFAXAN [Concomitant]
     Active Substance: RIFAXIMIN
  2. ONDANSETRON [Concomitant]
     Active Substance: ONDANSETRON
  3. LACTULOSE. [Concomitant]
     Active Substance: LACTULOSE
  4. VOLTAREN [Concomitant]
     Active Substance: DICLOFENAC SODIUM
  5. DEXTROSE. [Concomitant]
     Active Substance: DEXTROSE
  6. CEFTRIAXONE. [Concomitant]
     Active Substance: CEFTRIAXONE
  7. ACETAMINOPHEN. [Concomitant]
     Active Substance: ACETAMINOPHEN
  8. EPCLUSA [Suspect]
     Active Substance: SOFOSBUVIR\VELPATASVIR
     Indication: CHRONIC HEPATITIS C
     Route: 048
  9. THIAMINE. [Concomitant]
     Active Substance: THIAMINE
  10. OXYCODONE [Concomitant]
     Active Substance: OXYCODONE
  11. MORPHINE [Concomitant]
     Active Substance: MORPHINE
  12. PANTOPRAZOLE [Concomitant]
     Active Substance: PANTOPRAZOLE
  13. HUMALOG [Concomitant]
     Active Substance: INSULIN LISPRO
  14. GLUCAGON. [Concomitant]
     Active Substance: GLUCAGON
  15. SODIUM CHLORIDE. [Concomitant]
     Active Substance: SODIUM CHLORIDE
  16. PNEUMOVAX 23 [Concomitant]
     Active Substance: PNEUMOCOCCAL VACCINE, POLYVALENT 23
  17. LIDOCARE [Concomitant]
  18. FOLIC ACID. [Concomitant]
     Active Substance: FOLIC ACID

REACTIONS (1)
  - Death [None]

NARRATIVE: CASE EVENT DATE: 20190529
